FAERS Safety Report 8539065-4 (Version None)
Quarter: 2012Q3

REPORT INFORMATION
  Report Type: 
  Country: None (occurrence: None)
  Receive Date: 20120713
  Receipt Date: 20120703
  Transmission Date: 20120928
  Serious: Yes (Other)
  Sender: FDA-Public Use
  Company Number: KAD201203-000178

PATIENT
  Age: 57 Year
  Sex: Female
  Weight: 85.7298 kg

DRUGS (12)
  1. ECHINACEA [Concomitant]
  2. CITALOPRAM HYDROBROMIDE [Concomitant]
  3. PEG-INTRON [Suspect]
     Indication: HEPATITIS C
     Dosage: 180 MCG ONCE A WEEK
  4. MILK THISTLE [Concomitant]
  5. VICTRELIS [Suspect]
     Indication: HEPATITIS C
     Dosage: 200 MG 4 TABS THREE TIMES A DAY ORALLY
     Route: 048
     Dates: start: 20120521
  6. ZOLPIDEM [Concomitant]
  7. VITAMIN E [Concomitant]
  8. RIBAVIRIN [Suspect]
     Indication: HEPATITIS C
     Dosage: 1200 MG/DAY, 1000 MG DAILY (400 MG AM AND 600 MG PM)
     Dates: start: 20110904
  9. RIBAVIRIN [Suspect]
     Indication: HEPATITIS C
     Dosage: 1200 MG/DAY, 1000 MG DAILY (400 MG AM AND 600 MG PM)
     Dates: start: 20111107
  10. PEGASYS [Suspect]
     Indication: HEPATITIS C
     Dosage: 180 MCG ONCE A WEEK
  11. OMEPRAZOLE [Concomitant]
  12. ALLEGRA-D 12 HOUR [Concomitant]

REACTIONS (19)
  - INSOMNIA [None]
  - RED BLOOD CELL COUNT DECREASED [None]
  - FATIGUE [None]
  - WHITE BLOOD CELL COUNT DECREASED [None]
  - LACERATION [None]
  - IMPAIRED HEALING [None]
  - NIGHT SWEATS [None]
  - DYSPNOEA [None]
  - HAEMORRHOIDS [None]
  - ANAEMIA [None]
  - DIZZINESS [None]
  - ASTHENIA [None]
  - DIVERTICULUM [None]
  - PYREXIA [None]
  - ARTHRALGIA [None]
  - CHILLS [None]
  - WHEEZING [None]
  - JOINT STIFFNESS [None]
  - INJURY [None]
